FAERS Safety Report 8910686 (Version 1)
Quarter: 2012Q4

REPORT INFORMATION
  Report Type: Spontaneous
  Country: GB (occurrence: None)
  Receive Date: 20121113
  Receipt Date: 20121113
  Transmission Date: 20130627
  Serious: Yes (Life-Threatening, Hospitalization)
  Sender: FDA-Public Use
  Company Number: 2012AP003631

PATIENT
  Age: 72 Year
  Sex: Female

DRUGS (9)
  1. OMEPRAZOLE (OMEPRAZOLE) [Suspect]
     Indication: DRUG USE FOR UNKNOWN INDICATION
     Dates: start: 20120709
  2. AMOXICILLIN [Concomitant]
  3. ASPIRIN (ACETYLSALICYLIC ACID) [Concomitant]
  4. CALCICHEW D3 (LEKOVIT CA) [Concomitant]
  5. AMOXICILLIN\CLAVULANATE POTASSIUM [Concomitant]
  6. FERROUS GLUCONATE [Concomitant]
  7. OLMESARTAN MEDOXOMIL [Concomitant]
  8. QUININE [Concomitant]
  9. SALBUTAMOL [Concomitant]

REACTIONS (2)
  - Hypocalcaemia [None]
  - Hypomagnesaemia [None]
